FAERS Safety Report 6932808-2 (Version None)
Quarter: 2010Q3

REPORT INFORMATION
  Report Type: 
  Country: None (occurrence: None)
  Receive Date: 20100819
  Receipt Date: 20100809
  Transmission Date: 20110219
  Serious: Yes (Other)
  Sender: FDA-Public Use
  Company Number: US-ROCHE-672301

PATIENT
  Sex: Female
  Weight: 54.4 kg

DRUGS (1)
  1. ACCUTANE [Suspect]
     Indication: ACNE
     Route: 048
     Dates: start: 20050525, end: 20051018

REACTIONS (7)
  - BLOOD CHOLESTEROL INCREASED [None]
  - COLITIS ULCERATIVE [None]
  - DEPRESSION [None]
  - GASTROOESOPHAGEAL REFLUX DISEASE [None]
  - INFLAMMATORY BOWEL DISEASE [None]
  - PROCTITIS [None]
  - PSORIASIS [None]
